FAERS Safety Report 5466931-9 (Version None)
Quarter: 2007Q3

REPORT INFORMATION
  Report Type: 
  Country: None (occurrence: None)
  Receive Date: 20070925
  Receipt Date: 20070919
  Transmission Date: 20080115
  Serious: Yes (Disabling, Other)
  Sender: FDA-Public Use
  Company Number: CN-ASTRAZENECA-2007AP05799

PATIENT
  Sex: Female

DRUGS (1)
  1. LOSEC [Suspect]
     Indication: GASTRITIS
     Dosage: DOSAGE NOT KNOWN.
     Route: 048
     Dates: start: 20070902, end: 20070914

REACTIONS (3)
  - ALOPECIA [None]
  - BLINDNESS TRANSIENT [None]
  - VISION BLURRED [None]
